FAERS Safety Report 10470525 (Version 2)
Quarter: 2014Q4

REPORT INFORMATION
  Report Type: Spontaneous
  Country: IE (occurrence: IE)
  Receive Date: 20140923
  Receipt Date: 20141008
  Transmission Date: 20150528
  Serious: Yes (Death)
  Sender: FDA-Public Use
  Company Number: IE-TEVA-510146ISR

PATIENT

DRUGS (1)
  1. CISPLATIN. [Suspect]
     Active Substance: CISPLATIN
     Indication: SQUAMOUS CELL CARCINOMA
     Dosage: 40MG/M2 ONCE EVERY WEEK
     Route: 042

REACTIONS (3)
  - Neutropenic sepsis [Fatal]
  - Multi-organ failure [Fatal]
  - Venous thrombosis [Fatal]
